FAERS Safety Report 7567905-4 (Version None)
Quarter: 2011Q2

REPORT INFORMATION
  Report Type: 
  Country: None (occurrence: None)
  Receive Date: 20110616
  Receipt Date: 20110601
  Transmission Date: 20111010
  Serious: Yes (Hospitalization)
  Sender: FDA-Public Use
  Company Number: 2011CP000110

PATIENT
  Age: 71 Year
  Sex: Male

DRUGS (5)
  1. ACUPAN [Suspect]
     Indication: ANALGESIC THERAPY
  2. XALATAN [Concomitant]
  3. PRAVASTATIN SODIUM [Concomitant]
  4. VASTAREL [Concomitant]
  5. ACETAMINOPHEN [Suspect]
     Indication: HEADACHE
     Dosage: 1 GM;1 DAY;IV
     Route: 042
     Dates: start: 20110414, end: 20110415

REACTIONS (2)
  - THROMBOCYTOPENIA [None]
  - HAEMATOMA [None]
